FAERS Safety Report 18486970 (Version 1)
Quarter: 2020Q4

REPORT INFORMATION
  Report Type: Report from Study
  Country: CN (occurrence: CN)
  Receive Date: 20201110
  Receipt Date: 20201110
  Transmission Date: 20210114
  Serious: Yes (Hospitalization, Other)
  Sender: FDA-Public Use
  Company Number: CN-ASTRAZENECA-2020SF42651

PATIENT
  Sex: Male

DRUGS (1)
  1. BYETTA [Suspect]
     Active Substance: EXENATIDE
     Indication: DIABETES MELLITUS
     Route: 058

REACTIONS (6)
  - Diarrhoea [Recovering/Resolving]
  - Muscular weakness [Unknown]
  - Vomiting [Recovering/Resolving]
  - Gait disturbance [Unknown]
  - Hypovolaemic shock [Unknown]
  - Defaecation disorder [Unknown]
